FAERS Safety Report 8243659-3 (Version None)
Quarter: 2012Q1

REPORT INFORMATION
  Report Type: 
  Country: None (occurrence: None)
  Receive Date: 20120329
  Receipt Date: 20120322
  Transmission Date: 20120608
  Serious: Yes (Hospitalization)
  Sender: FDA-Public Use
  Company Number: US-BAYER-2011-033689

PATIENT
  Age: 29 Year
  Sex: Female
  Weight: 120 kg

DRUGS (12)
  1. CIPROFLOXACIN HCL [Concomitant]
     Indication: URINARY TRACT INFECTION
     Dosage: 500 MG, BID
     Route: 048
     Dates: start: 20090406, end: 20090415
  2. ALPRAZOLAM [Concomitant]
     Indication: ANXIETY
     Dosage: 0.25 MG, DAILY
     Route: 048
     Dates: start: 20081218, end: 20110301
  3. IBUPROFEN [Concomitant]
     Indication: PYREXIA
  4. IBUPROFEN [Concomitant]
     Indication: PAIN
     Dosage: 2 EVERY 4 TO 6 HOURS
     Route: 048
     Dates: start: 20090403, end: 20090410
  5. YAZ [Suspect]
     Indication: CONTRACEPTION
     Dosage: UNK
     Dates: start: 20070801, end: 20090410
  6. EXFORGE [Concomitant]
     Indication: BLOOD PRESSURE MANAGEMENT
     Dosage: UNK
     Route: 048
     Dates: start: 20081020, end: 20090601
  7. OMEPRAZOLE [Concomitant]
     Indication: GASTROINTESTINAL DISORDER
     Dosage: 20 MG, DAILY
     Route: 048
     Dates: start: 20081024, end: 20090701
  8. PHENTERMINE HYDROCHLORIDE [Concomitant]
     Indication: APPETITE DISORDER
     Dosage: 37.5 MG, DAILY
     Route: 048
     Dates: start: 20081220, end: 20090401
  9. LEXAPRO [Concomitant]
     Indication: DEPRESSION
     Dosage: 20 MG, DAILY
     Route: 048
     Dates: start: 20070213, end: 20090701
  10. TYLENOL [Concomitant]
     Indication: PYREXIA
  11. TYLENOL [Concomitant]
     Indication: PAIN
     Dosage: 2 EVERY 4 TO 6 HOURS
     Route: 048
     Dates: start: 20090403, end: 20090410
  12. AVAPRO [Concomitant]

REACTIONS (8)
  - SPLENOMEGALY [None]
  - PAIN [None]
  - GENERAL PHYSICAL HEALTH DETERIORATION [None]
  - EMOTIONAL DISTRESS [None]
  - ANXIETY [None]
  - PYREXIA [None]
  - MESENTERIC VEIN THROMBOSIS [None]
  - ABDOMINAL PAIN [None]
